FAERS Safety Report 18998166 (Version 1)
Quarter: 2021Q1

REPORT INFORMATION
  Report Type: Spontaneous
  Country: CO (occurrence: CO)
  Receive Date: 20210311
  Receipt Date: 20210311
  Transmission Date: 20210420
  Serious: Yes (Other)
  Sender: FDA-Public Use
  Company Number: CO-PFIZER INC-2021222575

PATIENT
  Age: 72 Year
  Sex: Female

DRUGS (5)
  1. PREGABALIN. [Concomitant]
     Active Substance: PREGABALIN
     Dosage: UNK
  2. SUTENT [Suspect]
     Active Substance: SUNITINIB MALATE
     Indication: NEUROENDOCRINE TUMOUR
     Dosage: 25 MG, CYCLIC FOR 28 DAYS AND RESTS 7 DAYS
     Route: 048
     Dates: start: 20210222
  3. SUTENT [Suspect]
     Active Substance: SUNITINIB MALATE
     Indication: METASTASES TO LYMPH NODES
  4. ACETAMINOPHEN. [Concomitant]
     Active Substance: ACETAMINOPHEN
     Dosage: UNK
  5. SUTENT [Suspect]
     Active Substance: SUNITINIB MALATE
     Indication: ENDOCRINE NEOPLASM MALIGNANT
     Dosage: 50 MG, CYCLIC FOR 28 DAYS AND RESTS 7 DAYS
     Route: 048
     Dates: start: 20201228

REACTIONS (16)
  - Functional gastrointestinal disorder [Recovered/Resolved]
  - Hypertension [Recovered/Resolved]
  - Discouragement [Recovered/Resolved]
  - Epistaxis [Recovered/Resolved]
  - Off label use [Unknown]
  - Decreased appetite [Recovered/Resolved]
  - Diarrhoea [Recovered/Resolved]
  - Back pain [Unknown]
  - Fatigue [Unknown]
  - Abdominal discomfort [Recovered/Resolved]
  - Heart rate increased [Recovered/Resolved]
  - Pain in extremity [Unknown]
  - Groin pain [Unknown]
  - Bone pain [Unknown]
  - Pain [Unknown]
  - Pelvic pain [Unknown]
